FAERS Safety Report 10433117 (Version 2)
Quarter: 2014Q3

REPORT INFORMATION
  Report Type: Report from Study
  Country: IE (occurrence: IE)
  Receive Date: 20140905
  Receipt Date: 20140905
  Transmission Date: 20150326
  Serious: Yes (Other)
  Sender: FDA-Public Use
  Company Number: IE-ABBVIE-14P-229-1238726-00

PATIENT
  Sex: Female

DRUGS (21)
  1. HUMIRA [Suspect]
     Active Substance: ADALIMUMAB
     Route: 058
  2. VITAMIN B [Concomitant]
     Active Substance: VITAMIN B
     Indication: PRODUCT USED FOR UNKNOWN INDICATION
     Dates: start: 2014
  3. DERTRALINE [Concomitant]
     Indication: PRODUCT USED FOR UNKNOWN INDICATION
  4. LEXOTAN [Concomitant]
     Active Substance: BROMAZEPAM
     Indication: PRODUCT USED FOR UNKNOWN INDICATION
  5. HUMIRA [Suspect]
     Active Substance: ADALIMUMAB
     Route: 058
  6. PREDNISOLONE. [Concomitant]
     Active Substance: PREDNISOLONE
     Indication: PRODUCT USED FOR UNKNOWN INDICATION
  7. COLPERMIN [Concomitant]
     Indication: PRODUCT USED FOR UNKNOWN INDICATION
  8. TEVA [Concomitant]
     Indication: PRODUCT USED FOR UNKNOWN INDICATION
  9. OSTEOMEL [Concomitant]
     Indication: PRODUCT USED FOR UNKNOWN INDICATION
  10. METHOTREXATE [Concomitant]
     Active Substance: METHOTREXATE
     Indication: PRODUCT USED FOR UNKNOWN INDICATION
  11. ATORVASTATIN [Concomitant]
     Active Substance: ATORVASTATIN
     Indication: PRODUCT USED FOR UNKNOWN INDICATION
  12. STILNOCT [Concomitant]
     Active Substance: ZOLPIDEM TARTRATE
     Indication: PRODUCT USED FOR UNKNOWN INDICATION
  13. FOLIC ACID. [Concomitant]
     Active Substance: FOLIC ACID
     Indication: PRODUCT USED FOR UNKNOWN INDICATION
  14. GALFER [Concomitant]
     Active Substance: IRON
     Indication: PRODUCT USED FOR UNKNOWN INDICATION
  15. DIPENTUM [Concomitant]
     Active Substance: OLSALAZINE SODIUM
     Indication: PRODUCT USED FOR UNKNOWN INDICATION
  16. COLIFOAM [Concomitant]
     Active Substance: HYDROCORTISONE
     Indication: PRODUCT USED FOR UNKNOWN INDICATION
  17. ZOLTON [Concomitant]
     Indication: PRODUCT USED FOR UNKNOWN INDICATION
  18. SERTRALINE [Concomitant]
     Active Substance: SERTRALINE HYDROCHLORIDE
     Indication: PRODUCT USED FOR UNKNOWN INDICATION
  19. HUMIRA [Suspect]
     Active Substance: ADALIMUMAB
     Indication: COLITIS ULCERATIVE
     Route: 058
     Dates: start: 20131205, end: 20131205
  20. HUMIRA [Suspect]
     Active Substance: ADALIMUMAB
     Route: 058
  21. IDEOS [Concomitant]
     Active Substance: CALCIUM CARBONATE\CHOLECALCIFEROL
     Indication: PRODUCT USED FOR UNKNOWN INDICATION

REACTIONS (4)
  - Muscle injury [Unknown]
  - Frequent bowel movements [Recovering/Resolving]
  - Defaecation urgency [Not Recovered/Not Resolved]
  - Drug effect incomplete [Unknown]
